FAERS Safety Report 11688616 (Version 1)
Quarter: 2015Q4

REPORT INFORMATION
  Report Type: Other
  Country: None (occurrence: SI)
  Receive Date: 20151102
  Receipt Date: 20151102
  Transmission Date: 20160304
  Serious: No
  Sender: FDA-Public Use
  Company Number: SI-BRECKENRIDGE PHARMACEUTICAL, INC.-1043626

PATIENT
  Age: 62 Year
  Sex: Female

DRUGS (1)
  1. DULOXETINE. [Suspect]
     Active Substance: DULOXETINE

REACTIONS (1)
  - Hyperhidrosis [Recovered/Resolved]
